FAERS Safety Report 6518776-6 (Version None)
Quarter: 2009Q4

REPORT INFORMATION
  Report Type: 
  Country: None (occurrence: None)
  Receive Date: 20091228
  Receipt Date: 20091125
  Transmission Date: 20100525
  Serious: No
  Sender: FDA-Public Use
  Company Number: US-BAYER-200941620NA

PATIENT
  Sex: Female

DRUGS (2)
  1. MIRENA [Suspect]
     Indication: DRUG USE FOR UNKNOWN INDICATION
     Dosage: CONTINUOUS
     Route: 015
     Dates: start: 20070101
  2. IBUPROFEN [Concomitant]
     Dosage: UNKNNOWN DOSAGE TAKEN FIRST 3 DAYS OF MENSTRUAL PERIOD

REACTIONS (1)
  - MENORRHAGIA [None]
